FAERS Safety Report 23569011 (Version 1)
Quarter: 2024Q1

REPORT INFORMATION
  Report Type: Spontaneous
  Country: US (occurrence: US)
  Receive Date: 20240227
  Receipt Date: 20240227
  Transmission Date: 20240409
  Serious: No
  Sender: FDA-Public Use
  Company Number: US-ORG100014127-2024000021

PATIENT
  Age: 43 Year
  Sex: Female

DRUGS (2)
  1. METYRAPONE [Suspect]
     Active Substance: METYRAPONE
     Indication: Diagnostic procedure
     Dosage: 31.6 MG/KG
  2. HYDROCORTISONE [Concomitant]
     Active Substance: HYDROCORTISONE
     Indication: Product used for unknown indication

REACTIONS (3)
  - Feeling hot [Unknown]
  - Nausea [Unknown]
  - Dizziness [Unknown]
